FAERS Safety Report 5989602-9 (Version None)
Quarter: 2008Q4

REPORT INFORMATION
  Report Type: 
  Country: None (occurrence: None)
  Receive Date: 20081208
  Receipt Date: 20081122
  Transmission Date: 20090506
  Serious: Yes (Life-Threatening)
  Sender: FDA-Public Use
  Company Number: 2008US003191

PATIENT
  Age: 60 Year
  Sex: Female

DRUGS (1)
  1. AMBISOME [Suspect]
     Indication: FUNGAL INFECTION
     Dosage: 250 MG, UID QD, IV NOS
     Route: 042

REACTIONS (3)
  - MUSCLE SPASTICITY [None]
  - PULMONARY OEDEMA [None]
  - PULMONARY TOXICITY [None]
